FAERS Safety Report 5095684-1 (Version None)
Quarter: 2006Q3

REPORT INFORMATION
  Report Type: 
  Country: None (occurrence: None)
  Receive Date: 20060731
  Receipt Date: 20060426
  Transmission Date: 20061208
  Serious: No
  Sender: FDA-Public Use
  Company Number: 2006PV012766

PATIENT
  Age: 71 Year
  Sex: Female
  Weight: 88.4514 kg

DRUGS (4)
  1. BYETTA [Suspect]
     Dosage: 10 MCG; BID; SC, SEE IMAGE
     Route: 058
     Dates: start: 20051201, end: 20060201
  2. BYETTA [Suspect]
     Dosage: 10 MCG; BID; SC, SEE IMAGE
     Route: 058
     Dates: start: 20060201
  3. GLYBURIDE [Concomitant]
  4. METFORMIN HCL [Concomitant]

REACTIONS (1)
  - BLOOD GLUCOSE INCREASED [None]
